FAERS Safety Report 11866547 (Version 1)
Quarter: 2015Q4

REPORT INFORMATION
  Report Type: Spontaneous
  Country: US (occurrence: US)
  Receive Date: 20151224
  Receipt Date: 20151224
  Transmission Date: 20160305
  Serious: Yes (Life-Threatening, Hospitalization)
  Sender: FDA-Public Use
  Company Number: US-HORIZON-DUE-0122-2015

PATIENT
  Age: 45 Year
  Sex: Female

DRUGS (6)
  1. XANAX [Concomitant]
     Active Substance: ALPRAZOLAM
  2. LITHIUM. [Interacting]
     Active Substance: LITHIUM
  3. TRAZODONE [Concomitant]
     Active Substance: TRAZODONE HYDROCHLORIDE
  4. CIPRO [Concomitant]
     Active Substance: CIPROFLOXACIN HYDROCHLORIDE
  5. ENSURE [Concomitant]
     Active Substance: AMINO ACIDS\DEXTROSE\ELECTROLYTES NOS\SOYBEAN OIL\VITAMINS
  6. DUEXIS [Suspect]
     Active Substance: FAMOTIDINE\IBUPROFEN
     Indication: ARTHRALGIA
     Dosage: 1 TABLET AS NEEDED

REACTIONS (16)
  - Seizure [Unknown]
  - Visual impairment [Unknown]
  - Toxicity to various agents [Unknown]
  - Road traffic accident [Unknown]
  - Disorientation [Unknown]
  - Cognitive disorder [Unknown]
  - Intentional product use issue [Unknown]
  - Dysphemia [Not Recovered/Not Resolved]
  - Urinary tract infection [Unknown]
  - Nervous system disorder [Not Recovered/Not Resolved]
  - Dysgeusia [Unknown]
  - Restlessness [Unknown]
  - Memory impairment [Not Recovered/Not Resolved]
  - Abnormal loss of weight [Unknown]
  - Resuscitation [Recovered/Resolved]
  - Hallucination [Unknown]
